FAERS Safety Report 9442629 (Version 2)
Quarter: 2013Q3

REPORT INFORMATION
  Report Type: Spontaneous
  Country: US (occurrence: US)
  Receive Date: 20130806
  Receipt Date: 20130827
  Transmission Date: 20140515
  Serious: No
  Sender: FDA-Public Use
  Company Number: US-009507513-1307USA016637

PATIENT
  Sex: Female

DRUGS (4)
  1. PEGINTRON [Suspect]
     Indication: HEPATITIS C
     Dosage: UNK
     Route: 065
     Dates: start: 20110101, end: 20110601
  2. PEGINTRON [Suspect]
     Dosage: UNK
     Route: 065
     Dates: start: 20130726
  3. REBETOL [Suspect]
     Indication: HEPATITIS C
     Dosage: UNK
     Route: 048
     Dates: start: 20110101, end: 20110601
  4. REBETOL [Suspect]
     Dosage: UNK
     Route: 048
     Dates: start: 20130726

REACTIONS (11)
  - Fatigue [Unknown]
  - Hepatitis C [Unknown]
  - Influenza like illness [Unknown]
  - Nausea [Unknown]
  - Injection site reaction [Unknown]
  - Ear disorder [Unknown]
  - Drug ineffective [Unknown]
  - Therapeutic response decreased [Unknown]
  - Hepatitis C [Unknown]
  - Fatigue [Unknown]
  - Influenza like illness [Unknown]
